FAERS Safety Report 25268949 (Version 1)
Quarter: 2025Q2

REPORT INFORMATION
  Report Type: Spontaneous
  Country: US (occurrence: US)
  Receive Date: 20250505
  Receipt Date: 20250505
  Transmission Date: 20250716
  Serious: Yes (Other)
  Sender: SANOFI AVENTIS
  Company Number: US-SA-2025SA127458

PATIENT
  Age: 55 Year
  Sex: Female
  Weight: 72.73 kg

DRUGS (1)
  1. DUPIXENT [Suspect]
     Active Substance: DUPILUMAB
     Indication: Eczema
     Dosage: 300 MG, QOW
     Route: 058
     Dates: start: 202409, end: 202503

REACTIONS (1)
  - Colon cancer [Not Recovered/Not Resolved]

NARRATIVE: CASE EVENT DATE: 20250301
